FAERS Safety Report 9492415 (Version 1)
Quarter: 2013Q3

REPORT INFORMATION
  Report Type: Spontaneous
  Country: US (occurrence: US)
  Receive Date: 20130830
  Receipt Date: 20130830
  Transmission Date: 20140515
  Serious: Yes (Death)
  Sender: FDA-Public Use
  Company Number: US-BRISTOL-MYERS SQUIBB COMPANY-19195536

PATIENT
  Age: 84 Year
  Sex: Male

DRUGS (9)
  1. ABILIFY [Suspect]
  2. CLARITIN [Concomitant]
  3. PEPCID [Concomitant]
  4. LEXAPRO [Concomitant]
  5. TRAZODONE HCL [Concomitant]
  6. POTASSIUM [Concomitant]
     Dosage: 1DF=2MEQ
  7. LASIX [Concomitant]
  8. TRILEPTAL [Concomitant]
  9. TRIAMCINOLONE [Concomitant]
     Dosage: CREAM

REACTIONS (2)
  - Death [Fatal]
  - Tremor [Unknown]
